FAERS Safety Report 6247144-X (Version None)
Quarter: 2009Q2

REPORT INFORMATION
  Report Type: 
  Country: None (occurrence: None)
  Receive Date: 20090624
  Receipt Date: 20090624
  Transmission Date: 20091009
  Serious: Yes (Life-Threatening)
  Sender: FDA-Public Use
  Company Number: None

PATIENT
  Sex: Male
  Weight: 107 kg

DRUGS (2)
  1. WARFARIN SODIUM [Suspect]
     Indication: ATRIAL FIBRILLATION
     Dosage: 2.5 - 5 MG DAILY PO SINCE MAY OF 1999
     Route: 048
  2. PLAVIX [Suspect]
     Dosage: 75 MG DAILY PO SINCE MARCH OF 2004
     Route: 048

REACTIONS (1)
  - HAEMATEMESIS [None]
